FAERS Safety Report 14283375 (Version 9)
Quarter: 2020Q3

REPORT INFORMATION
  Report Type: Spontaneous
  Country: US (occurrence: US)
  Receive Date: 20171213
  Receipt Date: 20200807
  Transmission Date: 20201102
  Serious: No
  Sender: FDA-Public Use
  Company Number: US-BIOGEN-2017BI00443465

PATIENT
  Age: 44 Year
  Sex: Female

DRUGS (7)
  1. TECFIDERA [Suspect]
     Active Substance: DIMETHYL FUMARATE
     Dosage: MAINTENANCE DOSE
     Route: 050
     Dates: start: 20150718
  2. TECFIDERA [Suspect]
     Active Substance: DIMETHYL FUMARATE
     Indication: MULTIPLE SCLEROSIS
     Dosage: MAINTENANCE DOSE
     Route: 050
     Dates: start: 20150716
  3. DULOXETINE. [Concomitant]
     Active Substance: DULOXETINE
     Route: 065
  4. AMPYRA [Concomitant]
     Active Substance: DALFAMPRIDINE
     Indication: GAIT DISTURBANCE
     Route: 050
  5. AMPYRA [Concomitant]
     Active Substance: DALFAMPRIDINE
     Route: 050
  6. AMPYRA [Concomitant]
     Active Substance: DALFAMPRIDINE
     Route: 050
  7. AMPYRA [Concomitant]
     Active Substance: DALFAMPRIDINE
     Route: 050

REACTIONS (9)
  - Product dose omission issue [Unknown]
  - Headache [Recovered/Resolved]
  - Alopecia [Unknown]
  - Condition aggravated [Recovered/Resolved]
  - Back pain [Unknown]
  - Hot flush [Unknown]
  - Pruritus [Recovered/Resolved]
  - Paraesthesia [Recovered/Resolved]
  - Flushing [Not Recovered/Not Resolved]

NARRATIVE: CASE EVENT DATE: 2015
